FAERS Safety Report 5344494-6 (Version None)
Quarter: 2007Q2

REPORT INFORMATION
  Report Type: 
  Country: None (occurrence: None)
  Receive Date: 20070604
  Receipt Date: 20070524
  Transmission Date: 20071010
  Serious: Yes (Other)
  Sender: FDA-Public Use
  Company Number: FR-PFIZER INC-2007034138

PATIENT
  Sex: Male
  Weight: 74 kg

DRUGS (1)
  1. TAHOR [Suspect]
     Indication: TYPE IIA HYPERLIPIDAEMIA

REACTIONS (4)
  - FALL [None]
  - MUSCLE RUPTURE [None]
  - MYALGIA [None]
  - PAIN [None]
